FAERS Safety Report 14652850 (Version 1)
Quarter: 2018Q1

REPORT INFORMATION
  Report Type: Report from Study
  Country: None (occurrence: ES)
  Receive Date: 20180319
  Receipt Date: 20180319
  Transmission Date: 20180509
  Serious: Yes (Hospitalization)
  Sender: FDA-Public Use
  Company Number: ES-ABBVIE-18K-144-2289357-00

PATIENT
  Age: 45 Year
  Sex: Female

DRUGS (2)
  1. HUMIRA [Suspect]
     Active Substance: ADALIMUMAB
     Indication: CROHN^S DISEASE
     Route: 058
     Dates: start: 20160607, end: 20160607
  2. AZATIOPRINA [Suspect]
     Active Substance: AZATHIOPRINE
     Indication: PRODUCT USED FOR UNKNOWN INDICATION
     Route: 065
     Dates: start: 20160524

REACTIONS (5)
  - Ear pain [Unknown]
  - Headache [Unknown]
  - Asthenia [Unknown]
  - Myalgia [Unknown]
  - Gingival pain [Unknown]

NARRATIVE: CASE EVENT DATE: 20160607
